FAERS Safety Report 6185378-3 (Version None)
Quarter: 2009Q2

REPORT INFORMATION
  Report Type: 
  Country: None (occurrence: None)
  Receive Date: 20090507
  Receipt Date: 20090427
  Transmission Date: 20091009
  Serious: Yes (Hospitalization)
  Sender: FDA-Public Use
  Company Number: 230071K09DEU

PATIENT
  Sex: Female

DRUGS (1)
  1. REBIF [Suspect]
     Dosage: 44 MCG ; 44 MCG
     Dates: start: 20090301

REACTIONS (2)
  - ECZEMA [None]
  - SINUSITIS [None]
